FAERS Safety Report 5007449-7 (Version None)
Quarter: 2006Q2

REPORT INFORMATION
  Report Type: 
  Country: None (occurrence: None)
  Receive Date: 20060519
  Receipt Date: 20060519
  Transmission Date: 20061013
  Serious: Yes (Other)
  Sender: FDA-Public Use
  Company Number: None

PATIENT
  Age: 30 Year
  Weight: 48.5349 kg

DRUGS (1)
  1. LEVAQUIN [Suspect]
     Indication: TONSILLITIS
     Dosage: 1 TABLET   ONCE EVERY 24 HRS   PO
     Route: 048
     Dates: start: 20060516, end: 20060516

REACTIONS (1)
  - RASH [None]
